FAERS Safety Report 5892665-2 (Version None)
Quarter: 2008Q3

REPORT INFORMATION
  Report Type: 
  Country: None (occurrence: None)
  Receive Date: 20080923
  Receipt Date: 20080916
  Transmission Date: 20090109
  Serious: Yes (Other)
  Sender: FDA-Public Use
  Company Number: PHHY2008JP21796

PATIENT
  Sex: Male

DRUGS (7)
  1. LAMISIL [Suspect]
     Dosage: UNK
     Route: 048
     Dates: start: 20080907, end: 20080908
  2. PRAVASTATIN SODIUM [Concomitant]
     Route: 048
  3. NORVASC [Concomitant]
     Route: 048
  4. THEOLONG [Concomitant]
     Route: 048
  5. SINGULAIR [Concomitant]
     Route: 048
  6. SULTANOL [Concomitant]
     Route: 048
  7. BASSAMIN [Suspect]

REACTIONS (3)
  - DIARRHOEA [None]
  - THIRST [None]
  - URINARY RETENTION [None]
